FAERS Safety Report 18152602 (Version 2)
Quarter: 2020Q3

REPORT INFORMATION
  Report Type: Spontaneous
  Country: US (occurrence: US)
  Receive Date: 20200814
  Receipt Date: 20200818
  Transmission Date: 20201103
  Serious: No
  Sender: FDA-Public Use
  Company Number: US-PFIZER INC-2020313665

PATIENT
  Age: 61 Year
  Sex: Female

DRUGS (2)
  1. IBRANCE [Suspect]
     Active Substance: PALBOCICLIB
     Dosage: 125 MG
     Dates: start: 20200712
  2. LETROZOLE. [Concomitant]
     Active Substance: LETROZOLE
     Dosage: UNK (CONTINUOUSLY EVEN ON ^OFF^ DAYS OF IBRANCE)

REACTIONS (2)
  - Weight increased [Unknown]
  - Malaise [Unknown]
